FAERS Safety Report 6361234-2 (Version None)
Quarter: 2009Q3

REPORT INFORMATION
  Report Type: 
  Country: None (occurrence: None)
  Receive Date: 20090918
  Receipt Date: 20090914
  Transmission Date: 20100115
  Serious: Yes (Other)
  Sender: FDA-Public Use
  Company Number: JP-AVENTIS-200912480JP

PATIENT

DRUGS (2)
  1. AMARYL [Suspect]
     Route: 048
  2. PLAVIX [Suspect]
     Route: 048

REACTIONS (1)
  - NO ADVERSE EVENT [None]
